FAERS Safety Report 17757030 (Version 1)
Quarter: 2020Q2

REPORT INFORMATION
  Report Type: Report from Study
  Country: DE (occurrence: DE)
  Receive Date: 20200507
  Receipt Date: 20200507
  Transmission Date: 20200714
  Serious: Yes (Other)
  Sender: FDA-Public Use
  Company Number: DE-SHIRE-DE201845553AA

PATIENT

DRUGS (1)
  1. VELAGLUCERASE ALFA [Suspect]
     Active Substance: VELAGLUCERASE ALFA
     Indication: GAUCHER^S DISEASE
     Dosage: 4000 INTERNATIONAL UNIT, 1X/2WKS
     Route: 042

REACTIONS (3)
  - Hepatic cirrhosis [Unknown]
  - Varices oesophageal [Not Recovered/Not Resolved]
  - Portal hypertension [Unknown]

NARRATIVE: CASE EVENT DATE: 20181113
